FAERS Safety Report 8920625 (Version 1)
Quarter: 2012Q4

REPORT INFORMATION
  Report Type: 
  Country: US (occurrence: US)
  Receive Date: 20121122
  Receipt Date: 20121122
  Transmission Date: 20130627
  Serious: Yes (Other)
  Sender: FDA-Public Use
  Company Number: CHPA2012US023777

PATIENT
  Sex: Female

DRUGS (1)
  1. VOLTAREN GEL [Suspect]
     Indication: FIBROMYALGIA
     Dosage: Unk, Once per day at night
     Route: 061
     Dates: start: 2010

REACTIONS (3)
  - Arthritis [Recovered/Resolved]
  - Off label use [Unknown]
  - Underdose [Unknown]
